FAERS Safety Report 9284115 (Version 2)
Quarter: 2013Q3

REPORT INFORMATION
  Report Type: Report from Study
  Country: US (occurrence: US)
  Receive Date: 20130510
  Receipt Date: 20130718
  Transmission Date: 20140515
  Serious: Yes (Other)
  Sender: FDA-Public Use
  Company Number: US-US-EMD SERONO, INC.-7209718

PATIENT
  Age: 68 Year
  Sex: Female

DRUGS (2)
  1. REBIF [Suspect]
     Indication: MULTIPLE SCLEROSIS
     Route: 058
     Dates: start: 20121010, end: 201301
  2. REBIF [Suspect]
     Route: 058
     Dates: end: 20130710

REACTIONS (3)
  - Staphylococcal infection [Recovered/Resolved]
  - Staphylococcal infection [Unknown]
  - Influenza [Recovered/Resolved]
